FAERS Safety Report 8886748 (Version 1)
Quarter: 2012Q4

REPORT INFORMATION
  Report Type: 
  Country: FR (occurrence: FR)
  Receive Date: 20121105
  Receipt Date: 20121105
  Transmission Date: 20130627
  Serious: Yes (Hospitalization)
  Sender: FDA-Public Use
  Company Number: FR-EISAI INC-E3810-06039-SPO-FR

PATIENT
  Age: 61 Year
  Sex: Male

DRUGS (7)
  1. PARIET (RABEPRAZOLE) [Suspect]
     Route: 048
     Dates: end: 20120808
  2. SEROPRAM B [Suspect]
     Route: 048
  3. DEPAKOTE [Suspect]
     Route: 048
  4. EVISTA [Concomitant]
     Route: 065
  5. SMECTA [Concomitant]
     Route: 065
  6. LEVOTHYROX [Concomitant]
     Route: 065
  7. CORDARONE [Concomitant]
     Route: 065

REACTIONS (2)
  - Cardiac failure [Unknown]
  - Hyponatraemia [Recovered/Resolved]
